FAERS Safety Report 8071715 (Version 2)
Quarter: 2013Q1

REPORT INFORMATION
  Report Type: Report from Study
  Country: DE (occurrence: DE)
  Receive Date: 20110805
  Receipt Date: 20130206
  Transmission Date: 20140127
  Serious: Yes (Death, Hospitalization, Other)
  Sender: FDA-Public Use
  Company Number: DE-BRISTOL-MYERS SQUIBB COMPANY-15929565

PATIENT
  Age: 66 Year
  Sex: Male
  Weight: 60 kg

DRUGS (5)
  1. IPILIMUMAB [Suspect]
     Indication: MALIGNANT MELANOMA
     Dosage: OVER 90 MIN PERIOD,VIAL NO:216419+20,261056-39
     Route: 042
     Dates: start: 20110317, end: 20110505
  2. AMLODIPINE [Concomitant]
  3. METFORMIN [Concomitant]
  4. FUROSEMIDE [Concomitant]
  5. PANTOPRAZOLE [Concomitant]

REACTIONS (3)
  - Malignant neoplasm progression [Fatal]
  - Sepsis [Fatal]
  - Tumour necrosis [Fatal]
